FAERS Safety Report 25399982 (Version 2)
Quarter: 2025Q2

REPORT INFORMATION
  Report Type: Spontaneous
  Country: JP (occurrence: JP)
  Receive Date: 20250605
  Receipt Date: 20250624
  Transmission Date: 20250717
  Serious: Yes (Other)
  Sender: ACCORD
  Company Number: JP-Accord-488253

PATIENT
  Age: 52 Year
  Sex: Female
  Weight: 81.8 kg

DRUGS (3)
  1. HYDROXYCHLOROQUINE [Suspect]
     Active Substance: HYDROXYCHLOROQUINE
     Indication: Systemic lupus erythematosus
     Dosage: ONCE IN MORNING
     Route: 048
  2. AZILSARTAN KAMEDOXOMIL [Concomitant]
     Active Substance: AZILSARTAN KAMEDOXOMIL
     Indication: Hypertension
  3. NIFEDIPINE [Concomitant]
     Active Substance: NIFEDIPINE
     Indication: Hypertension

REACTIONS (3)
  - Agranulocytosis [Recovered/Resolved]
  - Drug hypersensitivity [Recovered/Resolved]
  - Peripheral swelling [Recovered/Resolved]
